FAERS Safety Report 5247303-9 (Version None)
Quarter: 2007Q1

REPORT INFORMATION
  Report Type: 
  Country: None (occurrence: None)
  Receive Date: 20070223
  Receipt Date: 20070223
  Transmission Date: 20070707
  Serious: Yes (Hospitalization)
  Sender: FDA-Public Use
  Company Number: None

PATIENT
  Age: 59 Year
  Sex: Female
  Weight: 58.1511 kg

DRUGS (5)
  1. PREGABALIN   75 MG   PFIZER [Suspect]
     Dosage: 75 MG  BID  PO
     Route: 048
     Dates: start: 20061108, end: 20061128
  2. SYNTHROID [Concomitant]
  3. PREMARIN [Concomitant]
  4. EFFEXOR [Concomitant]
  5. ULTRAM [Concomitant]

REACTIONS (1)
  - INTENTIONAL OVERDOSE [None]
